FAERS Safety Report 5861941-1 (Version None)
Quarter: 2008Q3

REPORT INFORMATION
  Report Type: 
  Country: None (occurrence: None)
  Receive Date: 20080827
  Receipt Date: 20080722
  Transmission Date: 20090109
  Serious: No
  Sender: FDA-Public Use
  Company Number: US-ABBOTT-08P-163-0464527-00

PATIENT
  Sex: Female
  Weight: 77.18 kg

DRUGS (4)
  1. COATED PDS [Suspect]
     Indication: HIGH DENSITY LIPOPROTEIN DECREASED
     Dosage: 500 MG AT BED TIME
     Route: 048
     Dates: start: 20080611, end: 20080614
  2. DIOVAN HCT [Concomitant]
     Indication: BLOOD PRESSURE MANAGEMENT
     Dosage: 80 MG DAILY
     Route: 048
  3. ACETYLSALICYLIC ACID SRT [Concomitant]
     Indication: PROPHYLAXIS
     Dosage: TOOK 30 MINUTES PRIOR TO NIASPAN
     Route: 048
  4. ACETYLSALICYLIC ACID SRT [Concomitant]
     Indication: ADVERSE DRUG REACTION

REACTIONS (3)
  - ACNE [None]
  - FACIAL PAIN [None]
  - RASH [None]
